FAERS Safety Report 24922246 (Version 3)
Quarter: 2025Q1

REPORT INFORMATION
  Report Type: Spontaneous
  Country: US (occurrence: US)
  Receive Date: 20250204
  Receipt Date: 20250213
  Transmission Date: 20250409
  Serious: Yes (Death, Life-Threatening, Hospitalization, Other)
  Sender: PFIZER
  Company Number: US-PFIZER INC-PV202500012658

PATIENT
  Age: 56 Year
  Sex: Female

DRUGS (17)
  1. LINEZOLID [Suspect]
     Active Substance: LINEZOLID
     Indication: Escherichia infection
     Dosage: 600 MG, 2X/DAY
     Route: 048
  2. LINEZOLID [Suspect]
     Active Substance: LINEZOLID
     Indication: Enterococcal infection
  3. LINEZOLID [Suspect]
     Active Substance: LINEZOLID
     Indication: Escherichia infection
     Dosage: 600 MG, 2X/DAY
     Route: 042
  4. LINEZOLID [Suspect]
     Active Substance: LINEZOLID
     Indication: Enterococcal infection
  5. MEROPENEM [Concomitant]
     Active Substance: MEROPENEM
     Indication: Escherichia infection
     Dosage: 1 G, 3X/DAY
     Route: 042
  6. MEROPENEM [Concomitant]
     Active Substance: MEROPENEM
     Indication: Enterococcal infection
  7. METRONIDAZOLE [Concomitant]
     Active Substance: METRONIDAZOLE
     Indication: Escherichia infection
  8. METRONIDAZOLE [Concomitant]
     Active Substance: METRONIDAZOLE
     Indication: Enterococcal infection
  9. DAPTOMYCIN [Concomitant]
     Active Substance: DAPTOMYCIN
     Indication: Escherichia infection
  10. DAPTOMYCIN [Concomitant]
     Active Substance: DAPTOMYCIN
     Indication: Enterococcal infection
  11. DAPTOMYCIN [Concomitant]
     Active Substance: DAPTOMYCIN
     Indication: Sepsis
  12. CEFTRIAXONE [Concomitant]
     Active Substance: CEFTRIAXONE
     Indication: Escherichia infection
  13. CEFTRIAXONE [Concomitant]
     Active Substance: CEFTRIAXONE
     Indication: Enterococcal infection
  14. CEFDINIR [Concomitant]
     Active Substance: CEFDINIR
     Indication: Escherichia infection
     Dosage: 300 MG, 2X/DAY
     Route: 048
  15. CEFDINIR [Concomitant]
     Active Substance: CEFDINIR
     Indication: Enterococcal infection
  16. PIPERACILLIN SODIUM\TAZOBACTAM SODIUM [Concomitant]
     Active Substance: PIPERACILLIN SODIUM\TAZOBACTAM SODIUM
     Indication: Sepsis
  17. INSULIN NOS [Concomitant]
     Active Substance: INSULIN NOS
     Indication: Type 2 diabetes mellitus

REACTIONS (6)
  - Lactic acidosis [Fatal]
  - Shock [Fatal]
  - Pancreatitis [Fatal]
  - Hypoglycaemia [Unknown]
  - Nausea [Unknown]
  - Incorrect product administration duration [Unknown]
